FAERS Safety Report 7054616 (Version 5)
Quarter: 2013Q1

REPORT INFORMATION
  Report Type: Report from Study
  Country: US (occurrence: US)
  Receive Date: 20090720
  Receipt Date: 20130305
  Transmission Date: 20140127
  Serious: Yes (Hospitalization)
  Sender: FDA-Public Use
  Company Number: US-BRISTOL-MYERS SQUIBB COMPANY-14704902

PATIENT
  Age: 44 Year
  Sex: Female

DRUGS (3)
  1. ARIPIPRAZOLE [Suspect]
     Indication: SCHIZOPHRENIA
     Dosage: ARIPIPRAZOLE IM DEPOT;?LAST DOSE ON 09JUL2009: 400 MG IM
     Dates: start: 20090622, end: 20090709
  2. ASPIRIN [Concomitant]
     Route: 048
     Dates: start: 20090608, end: 20090621
  3. PALIPERIDONE [Concomitant]
     Indication: SCHIZOPHRENIA
     Route: 048
     Dates: start: 200903, end: 20090607

REACTIONS (1)
  - Schizophrenia [Recovered/Resolved]
